FAERS Safety Report 9756076 (Version 1)
Quarter: 2013Q4

REPORT INFORMATION
  Report Type: Spontaneous
  Country: US (occurrence: US)
  Receive Date: 20131213
  Receipt Date: 20131213
  Transmission Date: 20140711
  Serious: No
  Sender: FDA-Public Use
  Company Number: US-GLAXOSMITHKLINE-A1029204A

PATIENT
  Age: 23 Year
  Sex: Male

DRUGS (2)
  1. NICODERM CQ CLEAR 21MG [Suspect]
     Indication: EX-TOBACCO USER
     Dates: start: 20130627, end: 20130630
  2. TUMS [Concomitant]

REACTIONS (9)
  - Nausea [Recovered/Resolved]
  - Malaise [Recovered/Resolved]
  - Abnormal dreams [Unknown]
  - Sleep terror [Unknown]
  - Pain in extremity [Not Recovered/Not Resolved]
  - Rash [Unknown]
  - Skin discolouration [Recovered/Resolved]
  - Overdose [Unknown]
  - Eating disorder [Unknown]
